FAERS Safety Report 7014881-9 (Version None)
Quarter: 2010Q3

REPORT INFORMATION
  Report Type: 
  Country: None (occurrence: None)
  Receive Date: 20100927
  Receipt Date: 20100625
  Transmission Date: 20110219
  Serious: No
  Sender: FDA-Public Use
  Company Number: US-ASTRAZENECA-2010SE29916

PATIENT
  Sex: Male

DRUGS (2)
  1. ARIMIDEX [Suspect]
     Indication: BLOOD GROWTH HORMONE ABNORMAL
     Route: 048
  2. NORDITROPIN [Concomitant]
     Indication: BLOOD GROWTH HORMONE

REACTIONS (2)
  - BONE DEVELOPMENT ABNORMAL [None]
  - PRECOCIOUS PUBERTY [None]
